FAERS Safety Report 5409558-7 (Version None)
Quarter: 2007Q3

REPORT INFORMATION
  Report Type: 
  Country: None (occurrence: None)
  Receive Date: 20070809
  Receipt Date: 20070802
  Transmission Date: 20080115
  Serious: Yes (Life-Threatening, Other)
  Sender: FDA-Public Use
  Company Number: PHBS2007DK12821

PATIENT
  Age: 43 Year
  Sex: Female
  Weight: 50 kg

DRUGS (4)
  1. RECLAST [Suspect]
     Indication: OSTEOPOROSIS
     Dates: start: 20070702, end: 20070702
  2. AZATHIOPRINE SODIUM [Suspect]
     Indication: IMMUNOSUPPRESSION
     Dosage: 50 MG, BID
     Route: 048
     Dates: start: 20040101
  3. AZATHIOPRINE SODIUM [Suspect]
     Dosage: 50 MG, TID
     Route: 048
     Dates: start: 20070101
  4. PREDNISOLONE [Suspect]
     Indication: IMMUNOSUPPRESSION
     Dosage: 50 MG, QD
     Route: 048
     Dates: start: 20070414

REACTIONS (2)
  - DRUG INTERACTION [None]
  - MENINGITIS [None]
